FAERS Safety Report 5087260-1 (Version None)
Quarter: 2006Q3

REPORT INFORMATION
  Report Type: 
  Country: None (occurrence: None)
  Receive Date: 20060821
  Receipt Date: 20060814
  Transmission Date: 20061208
  Serious: Yes (Hospitalization)
  Sender: FDA-Public Use
  Company Number: DEWYE696814AUG06

PATIENT
  Sex: Female

DRUGS (1)
  1. LEVONORGESTREL + ETHINYL ESTRADIOL [Suspect]
     Indication: HORMONE LEVEL ABNORMAL
     Dosage: 1 TABLET ORAL
     Route: 048
     Dates: start: 20060201

REACTIONS (3)
  - CONDITION AGGRAVATED [None]
  - MIGRAINE [None]
  - VAGINAL HAEMORRHAGE [None]
